FAERS Safety Report 5150871-9 (Version None)
Quarter: 2006Q4

REPORT INFORMATION
  Report Type: 
  Country: None (occurrence: None)
  Receive Date: 20061108
  Receipt Date: 19991001
  Transmission Date: 20070319
  Serious: Yes (Hospitalization)
  Sender: FDA-Public Use
  Company Number: 2006118312

PATIENT
  Age: 49 Year
  Sex: Female

DRUGS (6)
  1. IRINOTECAN HCL [Suspect]
     Indication: LUNG CANCER METASTATIC
     Dosage: 210 MG, INTRAVENOUS
     Route: 042
     Dates: start: 19990910, end: 19990910
  2. FLUOROURACIL [Suspect]
     Dosage: 1820 MG, INTRAVENOUS
     Route: 042
     Dates: start: 19990910, end: 19990911
  3. FOLINIC ACID (FOLINIC ACID) [Suspect]
     Indication: LUNG CANCER METASTATIC
     Dosage: 360 MG, INTRAVENOUS
     Route: 042
     Dates: start: 19990910, end: 19990911
  4. OXALIPLATIN [Suspect]
     Indication: LUNG CANCER METASTATIC
     Dosage: 150 MG (EVERY DAY), INTRAVENOUS
     Route: 042
     Dates: start: 19990910, end: 19990910
  5. MAXILASE (AMYLASE) [Concomitant]
  6. DAFLON (DIOSMIN) [Concomitant]

REACTIONS (1)
  - PHLEBITIS DEEP [None]
